FAERS Safety Report 6459551 (Version 33)
Quarter: 2014Q4

REPORT INFORMATION
  Report Type: Spontaneous
  Country: US (occurrence: US)
  Receive Date: 20071106
  Receipt Date: 20141128
  Transmission Date: 20150529
  Serious: Yes (Hospitalization, Other)
  Sender: FDA-Public Use
  Company Number: PHEH2007US14304

PATIENT
  Sex: Male
  Weight: 82.99 kg

DRUGS (34)
  1. CHEMOTHERAPEUTICS NOS [Concomitant]
     Active Substance: UNSPECIFIED INGREDIENT
     Indication: PRODUCT USED FOR UNKNOWN INDICATION
     Route: 065
  2. PERCOCET [Concomitant]
     Active Substance: ACETAMINOPHEN\OXYCODONE HYDROCHLORIDE
     Indication: PRODUCT USED FOR UNKNOWN INDICATION
     Route: 065
  3. ANTIBIOTICS [Concomitant]
     Active Substance: UNSPECIFIED INGREDIENT
     Indication: PRODUCT USED FOR UNKNOWN INDICATION
     Route: 042
  4. GABAPENTIN. [Concomitant]
     Active Substance: GABAPENTIN
     Indication: PRODUCT USED FOR UNKNOWN INDICATION
     Route: 065
  5. CLARINEX                                /USA/ [Concomitant]
     Indication: PRODUCT USED FOR UNKNOWN INDICATION
     Route: 065
  6. LEVAQUIN [Concomitant]
     Active Substance: LEVOFLOXACIN
     Indication: PRODUCT USED FOR UNKNOWN INDICATION
     Route: 065
  7. ZOMETA [Suspect]
     Active Substance: ZOLEDRONIC ACID
     Indication: PROSTATE CANCER METASTATIC
     Dosage: 4 MG, QMO
     Route: 041
     Dates: start: 20031120
  8. EFFEXOR [Concomitant]
     Active Substance: VENLAFAXINE HYDROCHLORIDE
     Indication: PRODUCT USED FOR UNKNOWN INDICATION
     Route: 065
  9. PLAVIX [Concomitant]
     Active Substance: CLOPIDOGREL BISULFATE
     Indication: PRODUCT USED FOR UNKNOWN INDICATION
     Route: 065
  10. MSIR [Concomitant]
     Active Substance: MORPHINE SULFATE
     Indication: PRODUCT USED FOR UNKNOWN INDICATION
     Route: 065
  11. PROZAC [Concomitant]
     Active Substance: FLUOXETINE HYDROCHLORIDE
     Indication: PRODUCT USED FOR UNKNOWN INDICATION
     Dosage: 20 MG, QD
     Route: 048
  12. ASPIRIN ^BAYER^ [Concomitant]
     Active Substance: ASPIRIN
     Indication: PRODUCT USED FOR UNKNOWN INDICATION
     Route: 065
  13. PREDNISONE. [Concomitant]
     Active Substance: PREDNISONE
     Indication: PRODUCT USED FOR UNKNOWN INDICATION
     Route: 065
  14. PRINIVIL [Concomitant]
     Active Substance: LISINOPRIL
     Indication: PRODUCT USED FOR UNKNOWN INDICATION
     Route: 065
  15. COUMADIN [Concomitant]
     Active Substance: WARFARIN SODIUM
     Indication: PRODUCT USED FOR UNKNOWN INDICATION
     Route: 065
  16. KLOR-CON [Concomitant]
     Active Substance: POTASSIUM CHLORIDE
     Indication: PRODUCT USED FOR UNKNOWN INDICATION
     Route: 065
  17. OXYCONTIN [Concomitant]
     Active Substance: OXYCODONE HYDROCHLORIDE
     Indication: PRODUCT USED FOR UNKNOWN INDICATION
     Route: 065
  18. PROCRIT [Concomitant]
     Active Substance: ERYTHROPOIETIN
     Indication: PRODUCT USED FOR UNKNOWN INDICATION
     Route: 065
  19. TAXOTERE [Concomitant]
     Active Substance: DOCETAXEL
     Indication: PRODUCT USED FOR UNKNOWN INDICATION
     Route: 041
  20. COREG [Concomitant]
     Active Substance: CARVEDILOL
     Indication: PRODUCT USED FOR UNKNOWN INDICATION
     Route: 065
  21. LISINOPRIL. [Concomitant]
     Active Substance: LISINOPRIL
     Indication: PRODUCT USED FOR UNKNOWN INDICATION
     Route: 065
  22. AREDIA [Suspect]
     Active Substance: PAMIDRONATE DISODIUM
     Indication: PROSTATE CANCER METASTATIC
     Dosage: 90 MG, QW4
     Route: 041
     Dates: start: 20050117
  23. ZOCOR [Concomitant]
     Active Substance: SIMVASTATIN
     Indication: PRODUCT USED FOR UNKNOWN INDICATION
     Route: 065
  24. NASONEX [Concomitant]
     Active Substance: MOMETASONE FUROATE
     Indication: PRODUCT USED FOR UNKNOWN INDICATION
     Route: 065
  25. LUPRON [Concomitant]
     Active Substance: LEUPROLIDE ACETATE
     Indication: PRODUCT USED FOR UNKNOWN INDICATION
     Route: 065
  26. NITROGLYCERIN ^A.L.^ [Concomitant]
     Active Substance: NITROGLYCERIN
     Indication: PRODUCT USED FOR UNKNOWN INDICATION
     Route: 065
  27. RESTORIL [Concomitant]
     Active Substance: TEMAZEPAM
     Indication: PRODUCT USED FOR UNKNOWN INDICATION
     Route: 065
  28. AMBIEN [Concomitant]
     Active Substance: ZOLPIDEM TARTRATE
     Indication: PRODUCT USED FOR UNKNOWN INDICATION
     Route: 065
  29. CYMBALTA [Concomitant]
     Active Substance: DULOXETINE HYDROCHLORIDE
     Indication: PRODUCT USED FOR UNKNOWN INDICATION
     Route: 065
  30. NEURONTIN [Concomitant]
     Active Substance: GABAPENTIN
     Indication: PRODUCT USED FOR UNKNOWN INDICATION
     Route: 065
  31. COMPAZINE [Concomitant]
     Active Substance: PROCHLORPERAZINE MALEATE
     Indication: PRODUCT USED FOR UNKNOWN INDICATION
     Route: 065
  32. K-DUR [Concomitant]
     Active Substance: POTASSIUM CHLORIDE
     Indication: PRODUCT USED FOR UNKNOWN INDICATION
     Route: 065
  33. LASIX [Concomitant]
     Active Substance: FUROSEMIDE
     Indication: PRODUCT USED FOR UNKNOWN INDICATION
     Route: 065
  34. ZESTRIL [Concomitant]
     Active Substance: LISINOPRIL
     Indication: PRODUCT USED FOR UNKNOWN INDICATION
     Route: 065

REACTIONS (166)
  - Decreased appetite [Unknown]
  - Hypotension [Unknown]
  - Vomiting [Unknown]
  - Skeletal injury [Unknown]
  - Abnormal loss of weight [Unknown]
  - Anxiety [Unknown]
  - Gingivitis [Unknown]
  - Upper respiratory tract infection [Unknown]
  - Ejection fraction decreased [Unknown]
  - Mitral valve incompetence [Unknown]
  - Meniere^s disease [Unknown]
  - Ventricular tachycardia [Unknown]
  - Affective disorder [Unknown]
  - Varicose vein [Unknown]
  - Osteochondrosis [Unknown]
  - Dilatation ventricular [Unknown]
  - Post laminectomy syndrome [Unknown]
  - Arteriosclerosis coronary artery [Unknown]
  - Bone lesion [Unknown]
  - Dysphagia [Not Recovered/Not Resolved]
  - Pollakiuria [Unknown]
  - Left ventricular hypertrophy [Unknown]
  - Hyperlipidaemia [Unknown]
  - Hyperhidrosis [Unknown]
  - Lethargy [Unknown]
  - Back pain [Unknown]
  - Dyspnoea exertional [Unknown]
  - Pneumonia [Unknown]
  - Bone disorder [Unknown]
  - Total lung capacity decreased [Unknown]
  - Proctitis [Unknown]
  - Cerebrovascular accident [Unknown]
  - Urinary retention [Unknown]
  - Agranulocytosis [Unknown]
  - Intervertebral disc space narrowing [Unknown]
  - Facet joint syndrome [Unknown]
  - Pulmonary calcification [Unknown]
  - Hepatic lesion [Unknown]
  - Arthritis [Unknown]
  - Hypoaesthesia [Unknown]
  - Device malfunction [Unknown]
  - Neck pain [Unknown]
  - Arthralgia [Unknown]
  - Oropharyngeal pain [Unknown]
  - Dry mouth [Unknown]
  - Asthenia [Unknown]
  - Colon adenoma [Unknown]
  - Cerebral calcification [Unknown]
  - Bullous lung disease [Unknown]
  - Abdominal pain [Recovering/Resolving]
  - Dehydration [Unknown]
  - Osteoarthritis [Unknown]
  - Vascular calcification [Unknown]
  - Osteonecrosis of jaw [Unknown]
  - Cardiac failure congestive [Unknown]
  - Mouth ulceration [Unknown]
  - Sinus bradycardia [Unknown]
  - Lacrimation decreased [Unknown]
  - Peripheral vascular disorder [Unknown]
  - Arrhythmia [Unknown]
  - Dyslipidaemia [Unknown]
  - Aortic dilatation [Unknown]
  - Renal atrophy [Unknown]
  - Stomatitis [Unknown]
  - Ventricular extrasystoles [Unknown]
  - Bone pain [Unknown]
  - Vitamin B12 deficiency [Unknown]
  - Musculoskeletal chest pain [Unknown]
  - Paraesthesia [Unknown]
  - Chest pain [Recovered/Resolved]
  - Pain [Unknown]
  - Denture wearer [Unknown]
  - Metastases to large intestine [Unknown]
  - Angina pectoris [Unknown]
  - Cerebral atrophy [Unknown]
  - Atelectasis [Unknown]
  - Osteoporosis [Unknown]
  - Lymphoma [Unknown]
  - Eye pain [Unknown]
  - Presbyopia [Unknown]
  - Gastroenteritis [Unknown]
  - Neutropenia [Unknown]
  - Gastrointestinal haemorrhage [Unknown]
  - Pulmonary granuloma [Unknown]
  - Choking sensation [Unknown]
  - Tachycardia [Unknown]
  - Muscle spasms [Unknown]
  - Chills [Unknown]
  - Gait disturbance [Unknown]
  - Chronic obstructive pulmonary disease [Unknown]
  - Dizziness [Unknown]
  - Scoliosis [Unknown]
  - Anaemia [Unknown]
  - Encephalomalacia [Unknown]
  - Aortic aneurysm [Unknown]
  - Metastases to bone [Unknown]
  - Carotid artery occlusion [Unknown]
  - Sciatica [Unknown]
  - Tooth fracture [Unknown]
  - Carotid artery stenosis [Unknown]
  - Tricuspid valve incompetence [Unknown]
  - Rhinitis allergic [Unknown]
  - Cyst [Unknown]
  - Balance disorder [Unknown]
  - Dysstasia [Unknown]
  - Breath odour [Unknown]
  - Hypertension [Unknown]
  - Ischaemic cardiomyopathy [Unknown]
  - Lumbar radiculopathy [Unknown]
  - Interstitial lung disease [Unknown]
  - Neuropathy peripheral [Unknown]
  - Dry age-related macular degeneration [Unknown]
  - Spinal osteoarthritis [Unknown]
  - Metastases to liver [Unknown]
  - Pain in jaw [Unknown]
  - Fall [Unknown]
  - Subarachnoid haemorrhage [Unknown]
  - Anhedonia [Unknown]
  - Aortic valve calcification [Unknown]
  - Rib deformity [Unknown]
  - Oesophageal disorder [Unknown]
  - Exostosis [Unknown]
  - Dysuria [Unknown]
  - Dyskinesia [Unknown]
  - Flank pain [Unknown]
  - Gastrooesophageal reflux disease [Unknown]
  - Syncope [Recovering/Resolving]
  - Urinary tract infection [Recovering/Resolving]
  - Diarrhoea [Unknown]
  - Emotional distress [Unknown]
  - Wound dehiscence [Unknown]
  - Cardiomyopathy [Unknown]
  - Diverticulum [Unknown]
  - Visual impairment [Unknown]
  - Nephropathy [Unknown]
  - Depression [Unknown]
  - Pulmonary hypertension [Unknown]
  - Intestinal mass [Unknown]
  - Pancreatic disorder [Unknown]
  - Left atrial dilatation [Unknown]
  - Dermal cyst [Unknown]
  - Bundle branch block right [Unknown]
  - Electrocardiogram T wave abnormal [Unknown]
  - Hot flush [Unknown]
  - Nausea [Recovering/Resolving]
  - Cardiomegaly [Unknown]
  - Deformity [Unknown]
  - Fistula [Unknown]
  - Chronic kidney disease [Unknown]
  - Dilatation atrial [Unknown]
  - Arteriosclerosis [Unknown]
  - Blindness unilateral [Unknown]
  - Coronary artery disease [Unknown]
  - Transient ischaemic attack [Unknown]
  - Trichiasis [Unknown]
  - Hepatic pain [Unknown]
  - Atrial fibrillation [Unknown]
  - Arthropathy [Unknown]
  - Osteopenia [Unknown]
  - Haematoma [Unknown]
  - Osteosclerosis [Unknown]
  - Pancytopenia [Unknown]
  - Aphasia [Unknown]
  - Contusion [Unknown]
  - Pelvic pain [Unknown]
  - Cerebral ventricle dilatation [Unknown]

NARRATIVE: CASE EVENT DATE: 2007
